FAERS Safety Report 19087294 (Version 3)
Quarter: 2021Q4

REPORT INFORMATION
  Report Type: Report from Study
  Country: UG (occurrence: UG)
  Receive Date: 20210402
  Receipt Date: 20211231
  Transmission Date: 20220303
  Serious: Yes (Hospitalization, Other)
  Sender: FDA-Public Use
  Company Number: UG-CIPLA LTD.-2021UG02448

PATIENT

DRUGS (3)
  1. LOPINAVIR\RITONAVIR [Suspect]
     Active Substance: LOPINAVIR\RITONAVIR
     Indication: HIV infection
     Dosage: 6 DOSAGE FORM, BID (240MG/60MG TWICE DAILY)
     Route: 048
     Dates: start: 20160712, end: 20180515
  2. ABACAVIR\LAMIVUDINE [Suspect]
     Active Substance: ABACAVIR\LAMIVUDINE
     Indication: HIV infection
     Dosage: 3 DOSAGE FORM, BID (180MG/90MG BID)
     Route: 048
     Dates: start: 20160712, end: 20180515
  3. BACTRIM [Concomitant]
     Active Substance: SULFAMETHOXAZOLE\TRIMETHOPRIM
     Indication: Prophylaxis
     Dosage: UNK
     Route: 065
     Dates: start: 20170712

REACTIONS (5)
  - Malaria [Recovered/Resolved]
  - Respiratory tract infection [Recovered/Resolved]
  - Parotid gland enlargement [Not Recovered/Not Resolved]
  - Dermatitis [Recovering/Resolving]
  - Pyrexia [Recovered/Resolved]

NARRATIVE: CASE EVENT DATE: 20170611
